FAERS Safety Report 8030420-8 (Version None)
Quarter: 2012Q1

REPORT INFORMATION
  Report Type: 
  Country: None (occurrence: None)
  Receive Date: 20120109
  Receipt Date: 20120109
  Transmission Date: 20120608
  Serious: Yes (Hospitalization)
  Sender: FDA-Public Use
  Company Number: None

PATIENT
  Age: 43 Year
  Sex: Female
  Weight: 63.502 kg

DRUGS (3)
  1. CYMBALTA [Suspect]
     Indication: ANXIETY
     Dates: start: 20090401, end: 20111212
  2. ZOCOR [Concomitant]
     Route: 048
  3. BENICAR [Concomitant]
     Route: 048

REACTIONS (1)
  - WITHDRAWAL HYPERTENSION [None]
